FAERS Safety Report 22250377 (Version 1)
Quarter: 2023Q2

REPORT INFORMATION
  Report Type: Report from Study
  Country: US (occurrence: US)
  Receive Date: 20230425
  Receipt Date: 20230425
  Transmission Date: 20230721
  Serious: Yes (Other)
  Sender: FDA-Public Use
  Company Number: US-ORPHANEU-2023002434

PATIENT

DRUGS (4)
  1. CARBAGLU [Suspect]
     Active Substance: CARGLUMIC ACID
     Indication: N-acetylglutamate synthase deficiency
     Dosage: STARTED AT THE AGE OF 18.94 YEAR
  2. ISOLEUCINE [Concomitant]
     Active Substance: ISOLEUCINE
     Indication: Product used for unknown indication
     Dosage: STARTED AT THE AGE OF 14.65 YEAR
  3. LEUCINE [Concomitant]
     Active Substance: LEUCINE
     Indication: Product used for unknown indication
     Dosage: STARTED AT THE AGE OF 14.65 YEAR
  4. VALINE [Concomitant]
     Active Substance: VALINE
     Indication: Product used for unknown indication
     Dosage: STARTED AT THE AGE OF 14.65 YEAR

REACTIONS (1)
  - Laryngeal stenosis [Not Recovered/Not Resolved]
